FAERS Safety Report 7983944-3 (Version None)
Quarter: 2011Q4

REPORT INFORMATION
  Report Type: 
  Country: None (occurrence: None)
  Receive Date: 20111216
  Receipt Date: 20111213
  Transmission Date: 20120403
  Serious: No
  Sender: FDA-Public Use
  Company Number: US-BIOGENIDEC-2011BI047301

PATIENT
  Age: 46 Year
  Sex: Female

DRUGS (3)
  1. AVONEX [Concomitant]
     Indication: MULTIPLE SCLEROSIS
     Route: 030
     Dates: start: 19990510
  2. TYSABRI [Suspect]
     Route: 042
     Dates: start: 20080730, end: 20100527
  3. TYSABRI [Suspect]
     Indication: MULTIPLE SCLEROSIS
     Route: 042
     Dates: start: 20111125

REACTIONS (7)
  - MULTIPLE SCLEROSIS [None]
  - OROPHARYNGEAL PAIN [None]
  - PHARYNGITIS [None]
  - BAND SENSATION [None]
  - FATIGUE [None]
  - MUSCLE TIGHTNESS [None]
  - ARTHRALGIA [None]
